FAERS Safety Report 15379467 (Version 1)
Quarter: 2018Q3

REPORT INFORMATION
  Report Type: Spontaneous
  Country: US (occurrence: US)
  Receive Date: 20180913
  Receipt Date: 20180913
  Transmission Date: 20181010
  Serious: No
  Sender: FDA-Public Use
  Company Number: US-ASTELLAS-2018US022930

PATIENT
  Age: 91 Year
  Sex: Male

DRUGS (5)
  1. XTANDI [Suspect]
     Active Substance: ENZALUTAMIDE
     Route: 048
     Dates: start: 201711, end: 201711
  2. XTANDI [Suspect]
     Active Substance: ENZALUTAMIDE
     Route: 048
     Dates: start: 201711
  3. XTANDI [Suspect]
     Active Substance: ENZALUTAMIDE
     Route: 048
  4. XTANDI [Suspect]
     Active Substance: ENZALUTAMIDE
     Indication: PROSTATE CANCER
     Route: 048
     Dates: start: 201711, end: 201711
  5. XTANDI [Suspect]
     Active Substance: ENZALUTAMIDE
     Route: 048
     Dates: start: 201711, end: 201711

REACTIONS (4)
  - Panic attack [Recovering/Resolving]
  - Urticaria [Recovered/Resolved]
  - Hallucination [Unknown]
  - Rash [Recovered/Resolved]

NARRATIVE: CASE EVENT DATE: 201711
